FAERS Safety Report 9792913 (Version 2)
Quarter: 2014Q2

REPORT INFORMATION
  Report Type: Spontaneous
  Country: US (occurrence: US)
  Receive Date: 20140102
  Receipt Date: 20140402
  Transmission Date: 20141212
  Serious: No
  Sender: FDA-Public Use
  Company Number: US-SA-2013SA128958

PATIENT
  Sex: Female

DRUGS (17)
  1. AUBAGIO [Suspect]
     Indication: MULTIPLE SCLEROSIS
     Route: 048
     Dates: start: 201311
  2. CYMBALTA [Concomitant]
     Dosage: STRENGTH: 60MG
  3. SINGULAIR [Concomitant]
     Dosage: STRENGTH: 10MG
  4. EFFEXOR [Concomitant]
     Dosage: STRENGTH: 75MG
  5. AMBIEN [Concomitant]
     Dosage: STRENGTH: 10MG
  6. TRAMADOL HYDROCHLORIDE [Concomitant]
     Dosage: STRENGTH: 50MG
  7. CLONAZEPAM [Concomitant]
     Dosage: STRENGTH: 1MG
  8. GABAPENTIN [Concomitant]
     Dosage: STRENGTH: 600MG
  9. TYLENOL [Concomitant]
     Dosage: STRENGTH: 325MG
  10. ADDERALL [Concomitant]
     Dosage: STRENGTH: 20MG
  11. CHONDROITIN W/GLUCOSAMINE [Concomitant]
  12. BIOTIN [Concomitant]
     Dosage: STRENGTH: 5000MCG
  13. ABILIFY [Concomitant]
     Dosage: STRENGTH: 10MG
  14. VITAMIN D [Concomitant]
     Dosage: STRENGTH: 1000 UNITS
  15. VITAMIN E [Concomitant]
     Dosage: STRENGTH: 400 UNITS
  16. FIORICET [Concomitant]
     Dosage: STRENGTH: 50-325-40MG
  17. PHENERGAN [Concomitant]
     Dosage: STRENGTH: 25MG/ML AMPUL

REACTIONS (5)
  - Feeling hot [Unknown]
  - Balance disorder [Unknown]
  - Pruritus [Recovering/Resolving]
  - Skin irritation [Recovering/Resolving]
  - Alopecia [Unknown]
